FAERS Safety Report 12783095 (Version 1)
Quarter: 2016Q3

REPORT INFORMATION
  Report Type: Spontaneous
  Country: US (occurrence: US)
  Receive Date: 20160927
  Receipt Date: 20160927
  Transmission Date: 20161109
  Serious: Yes (Life-Threatening, Hospitalization, Other)
  Sender: FDA-Public Use
  Company Number: US-SUN PHARMACEUTICAL INDUSTRIES LTD-2016US-124743

PATIENT
  Age: 20 Year
  Sex: Male

DRUGS (1)
  1. LOPERAMIDE [Suspect]
     Active Substance: LOPERAMIDE
     Indication: DRUG WITHDRAWAL SYNDROME
     Dosage: 288 MG, DAILY (HIGH DOSES, 2 BOTTLES OF 2MG TABLETS)
     Route: 065

REACTIONS (5)
  - Torsade de pointes [Recovered/Resolved]
  - Syncope [Unknown]
  - Drug abuse [Unknown]
  - Ventricular arrhythmia [Recovered/Resolved]
  - Congestive cardiomyopathy [Recovered/Resolved]
